FAERS Safety Report 4831865-7 (Version None)
Quarter: 2005Q4

REPORT INFORMATION
  Report Type: 
  Country: None (occurrence: None)
  Receive Date: 20051118
  Receipt Date: 20041115
  Transmission Date: 20060501
  Serious: Yes (Hospitalization)
  Sender: FDA-Public Use
  Company Number: US-ROCHE-386416

PATIENT
  Age: 54 Year
  Sex: Female
  Weight: 101 kg

DRUGS (16)
  1. PEG-INTERFERON ALFA 2A (RO 25-8310) [Suspect]
     Route: 058
     Dates: start: 20040720, end: 20041108
  2. PEG-INTERFERON ALFA 2A (RO 25-8310) [Suspect]
     Route: 058
     Dates: start: 20041214, end: 20050424
  3. RIBAVIRIN [Suspect]
     Route: 048
     Dates: start: 20040720, end: 20041108
  4. INSULIN [Concomitant]
     Dosage: INSULIN WITH A DOSE OF 15 UNITS, WAS STOPPED ON 24 APRIL 2004. RESTARTED ON AN UNKNOWN DATE .
     Dates: start: 20010515
  5. TEVETEN HCT [Concomitant]
     Dosage: STOPPED ON 24 APR 2005 AND RESTARTED AT AN UNKNOWN DATE.
     Dates: start: 20030615
  6. DARVOCET [Concomitant]
     Dates: start: 20020615
  7. ZOLOFT [Concomitant]
     Dosage: AS OF 03 DEC 2004 INCREASED TO 50 MG PER DAY. DECREASED AT AN UNKNOWN DATE TO 25 MG DAILY.
     Dates: start: 20041019
  8. TOPROL-XL [Concomitant]
     Dosage: DOSE INCREASED TO 200 MG ON 24 APRIL 2005.
     Dates: start: 20011212
  9. PROPOXYPHENE NAPSYLATE [Concomitant]
     Dosage: TOTAL DAILY DOSE REPORTED AS 100/65MG.
     Dates: start: 20000615, end: 20050424
  10. PROTONIX [Concomitant]
     Dosage: REPORTED AS PROTONIX T.
     Dates: start: 20040810, end: 20050424
  11. LEXAPRO [Concomitant]
     Dates: start: 20040810, end: 20050424
  12. MAGNESIUM OXIDE [Concomitant]
     Dates: start: 20041203, end: 20050424
  13. NEUTRA-PHOS [Concomitant]
     Dosage: TWO PACKS DAILY.
     Dates: start: 20041203, end: 20050424
  14. PREVACID [Concomitant]
     Dates: start: 20041203, end: 20050424
  15. TOPROL-XL [Concomitant]
     Dates: start: 20020615
  16. FOLIC ACID [Concomitant]
     Dosage: STOPPED ON 24 APR 2005 AND RESTARTED AT AN UNKNOWN DATE.
     Dates: start: 20041203

REACTIONS (12)
  - ANAEMIA [None]
  - FACE OEDEMA [None]
  - GINGIVAL BLEEDING [None]
  - GRAND MAL CONVULSION [None]
  - HAEMATEMESIS [None]
  - HYPOKALAEMIA [None]
  - LYMPHADENITIS [None]
  - METABOLIC ACIDOSIS [None]
  - NAUSEA [None]
  - PAROTITIS [None]
  - THROMBOCYTOPENIA [None]
  - VOMITING [None]
